FAERS Safety Report 7355051-4 (Version None)
Quarter: 2011Q1

REPORT INFORMATION
  Report Type: 
  Country: None (occurrence: None)
  Receive Date: 20110307
  Receipt Date: 20110225
  Transmission Date: 20110831
  Serious: Yes (Hospitalization)
  Sender: FDA-Public Use
  Company Number: 8054945

PATIENT
  Sex: Male
  Weight: 131.8 kg

DRUGS (10)
  1. METHOTREXATE [Concomitant]
  2. CALCIUM WITH VITAMIN D [Concomitant]
  3. CERTOLIZUMAB PEGOL [Suspect]
     Indication: RHEUMATOID ARTHRITIS
     Dosage: -NR OF DOSES: 3 SUBCUTANEOUS)
     Route: 058
     Dates: start: 20091007
  4. OMEPRAZOLE [Concomitant]
  5. PLAVIX [Concomitant]
  6. PREDNISOLONE [Concomitant]
  7. CLOTRIMAZOLE W/BETAMETHASONE DIPROPIONAT [Concomitant]
  8. FOLIC ACID [Concomitant]
  9. NITROGLYCERIN [Concomitant]
  10. DIOVAN [Concomitant]

REACTIONS (10)
  - MUSCULOSKELETAL CHEST PAIN [None]
  - BRONCHOSPASM [None]
  - HEAD INJURY [None]
  - BRONCHITIS [None]
  - FALL [None]
  - LOSS OF CONSCIOUSNESS [None]
  - MUSCLE STRAIN [None]
  - EJECTION FRACTION DECREASED [None]
  - CARDIAC DISORDER [None]
  - DIZZINESS [None]
